FAERS Safety Report 25066617 (Version 1)
Quarter: 2025Q1

REPORT INFORMATION
  Report Type: Spontaneous
  Country: FR (occurrence: FR)
  Receive Date: 20250312
  Receipt Date: 20250312
  Transmission Date: 20250408
  Serious: Yes (Hospitalization)
  Sender: CELLTRION
  Company Number: None

PATIENT

DRUGS (2)
  1. RITUXIMAB [Suspect]
     Active Substance: RITUXIMAB
     Indication: Thrombocytopenia
     Route: 042
     Dates: start: 20240208, end: 20240208
  2. RUXOLITINIB [Suspect]
     Active Substance: RUXOLITINIB
     Indication: Myelofibrosis
     Route: 048
     Dates: start: 20240209, end: 20240725

REACTIONS (4)
  - Post herpetic neuralgia [Recovered/Resolved with Sequelae]
  - Rash vesicular [Recovered/Resolved with Sequelae]
  - Acute sinusitis [Recovered/Resolved]
  - Intentional product use issue [Unknown]

NARRATIVE: CASE EVENT DATE: 20240706
